FAERS Safety Report 8136073-2 (Version None)
Quarter: 2012Q1

REPORT INFORMATION
  Report Type: 
  Country: None (occurrence: None)
  Receive Date: 20120214
  Receipt Date: 20120207
  Transmission Date: 20120608
  Serious: Yes (Hospitalization)
  Sender: FDA-Public Use
  Company Number: US-ELI_LILLY_AND_COMPANY-US201202001931

PATIENT
  Sex: Male

DRUGS (2)
  1. PRASUGREL HYDROCHLORIDE [Suspect]
     Dosage: UNK
     Dates: start: 20120201, end: 20120205
  2. ASPIRIN [Concomitant]
     Dosage: 325 MG, QD

REACTIONS (1)
  - VASCULAR PSEUDOANEURYSM [None]
